FAERS Safety Report 10061301 (Version 1)
Quarter: 2014Q2

REPORT INFORMATION
  Report Type: Spontaneous
  Country: JP (occurrence: JP)
  Receive Date: 20140407
  Receipt Date: 20140407
  Transmission Date: 20141212
  Serious: Yes (Other)
  Sender: FDA-Public Use
  Company Number: JP-009507513-1404JPN003157

PATIENT
  Age: 65 Year
  Sex: Male

DRUGS (1)
  1. JANUVIA TABLETS 50MG [Suspect]
     Dosage: 50 MG, QD
     Route: 048
     Dates: start: 201006, end: 201109

REACTIONS (1)
  - Tubulointerstitial nephritis [Unknown]
